FAERS Safety Report 6034925-0 (Version None)
Quarter: 2009Q1

REPORT INFORMATION
  Report Type: 
  Country: None (occurrence: None)
  Receive Date: 20090108
  Receipt Date: 20090108
  Transmission Date: 20090719
  Serious: No
  Sender: FDA-Public Use
  Company Number: None

PATIENT
  Age: 67 Year
  Sex: Male
  Weight: 74.3899 kg

DRUGS (1)
  1. CARVEDILOL [Suspect]

REACTIONS (1)
  - PRODUCT QUALITY ISSUE [None]
